FAERS Safety Report 21594911 (Version 1)
Quarter: 2022Q4

REPORT INFORMATION
  Report Type: Spontaneous
  Country: US (occurrence: US)
  Receive Date: 20221115
  Receipt Date: 20221115
  Transmission Date: 20230113
  Serious: Yes (Other)
  Sender: FDA-Public Use
  Company Number: US-RECKITT BENCKISER HEALTHCARE INT LIMITED-RB-101886-2022

PATIENT
  Age: 5 Year
  Sex: Male

DRUGS (2)
  1. MUCINEX CHILDRENS MULTI-SYMPTOM COLD AND SORE THROAT [Suspect]
     Active Substance: ACETAMINOPHEN\DEXTROMETHORPHAN HYDROBROMIDE\GUAIFENESIN\PHENYLEPHRINE HYDROCHLORIDE
     Indication: Nasopharyngitis
     Dosage: 5 MILLILITER, SINGLE
     Route: 048
     Dates: start: 20221030, end: 20221030
  2. MUCINEX CHILDRENS COLD AND FLU [Suspect]
     Active Substance: ACETAMINOPHEN\DEXTROMETHORPHAN HYDROBROMIDE\GUAIFENESIN\PHENYLEPHRINE HYDROCHLORIDE
     Indication: Sneezing

REACTIONS (6)
  - Lip swelling [Recovering/Resolving]
  - Peripheral swelling [Recovering/Resolving]
  - Genital swelling [Recovering/Resolving]
  - Rash [Not Recovered/Not Resolved]
  - Eye swelling [Not Recovered/Not Resolved]
  - Swelling face [Not Recovered/Not Resolved]

NARRATIVE: CASE EVENT DATE: 20221030
